FAERS Safety Report 7625890-0 (Version None)
Quarter: 2011Q3

REPORT INFORMATION
  Report Type: 
  Country: None (occurrence: None)
  Receive Date: 20110721
  Receipt Date: 20110711
  Transmission Date: 20111222
  Serious: Yes (Hospitalization, Other)
  Sender: FDA-Public Use
  Company Number: US-ABBOTT-11P-163-0837767-00

PATIENT
  Sex: Female
  Weight: 81.72 kg

DRUGS (5)
  1. ESTROGEN REPLACEMENT [Concomitant]
     Indication: MENOPAUSE
  2. HYDROCHLOROTHIAZIDE [Concomitant]
     Indication: FLUID RETENTION
  3. VITAMINS [Concomitant]
     Indication: VITAMIN SUPPLEMENTATION
  4. HUMIRA [Suspect]
     Indication: CROHN'S DISEASE
     Route: 058
     Dates: start: 20090101, end: 20110617
  5. PROGESTERONE REPLACEMENT [Concomitant]
     Indication: MENOPAUSE

REACTIONS (5)
  - LYMPHADENOPATHY [None]
  - SMALL INTESTINAL OBSTRUCTION [None]
  - CROHN'S DISEASE [None]
  - MALAISE [None]
  - B-CELL LYMPHOMA [None]
